FAERS Safety Report 8762954 (Version 2)
Quarter: 2012Q4

REPORT INFORMATION
  Report Type: Spontaneous
  Country: US (occurrence: None)
  Receive Date: 20120824
  Receipt Date: 20121015
  Transmission Date: 20130627
  Serious: Yes (Death)
  Sender: FDA-Public Use
  Company Number: 2009003874

PATIENT
  Sex: Female

DRUGS (2)
  1. TARCEVA [Suspect]
     Indication: MALIGNANT NEOPLASM OF PANCREAS
     Route: 048
     Dates: start: 20091109
  2. TARCEVA [Suspect]
     Indication: MALIGNANT NEOPLASM OF PANCREAS
     Route: 048
     Dates: start: 20091201

REACTIONS (3)
  - Rash [None]
  - Pancreatic carcinoma metastatic [None]
  - Disease progression [None]
